FAERS Safety Report 6826111-9 (Version None)
Quarter: 2010Q3

REPORT INFORMATION
  Report Type: 
  Country: None (occurrence: None)
  Receive Date: 20100709
  Receipt Date: 20100628
  Transmission Date: 20110219
  Serious: Yes (Other)
  Sender: FDA-Public Use
  Company Number: CA-JNJFOC-20100700236

PATIENT
  Sex: Female
  Weight: 49.5 kg

DRUGS (4)
  1. REMICADE [Suspect]
     Indication: CROHN'S DISEASE
     Route: 042
  2. REMICADE [Suspect]
     Dosage: HAS HAD 25 INFUSIONS,  2 INFUSIONS WERE AT 500 MG (PREVIOUSLY WAS 200 MG)
     Route: 042
  3. CELEBREX [Concomitant]
  4. ADVIL LIQUI-GELS [Concomitant]

REACTIONS (1)
  - IRITIS [None]
